FAERS Safety Report 17618685 (Version 1)
Quarter: 2020Q2

REPORT INFORMATION
  Report Type: Spontaneous
  Country: US (occurrence: US)
  Receive Date: 20200402
  Receipt Date: 20200402
  Transmission Date: 20200713
  Serious: No
  Sender: FDA-Public Use
  Company Number: US-BIOMARINAP-US-2020-128979

PATIENT
  Age: 18 Year
  Sex: Male

DRUGS (1)
  1. PALYNZIQ [Suspect]
     Active Substance: PEGVALIASE-PQPZ
     Indication: PRODUCT USED FOR UNKNOWN INDICATION
     Dosage: 2.5 MILLIGRAM, QW
     Route: 058
     Dates: start: 20200224

REACTIONS (3)
  - Injection site swelling [Recovering/Resolving]
  - Swelling [Recovering/Resolving]
  - Tenderness [Recovering/Resolving]

NARRATIVE: CASE EVENT DATE: 20200305
